FAERS Safety Report 6082251-6 (Version None)
Quarter: 2009Q1

REPORT INFORMATION
  Report Type: 
  Country: None (occurrence: None)
  Receive Date: 20090126
  Receipt Date: 20081104
  Transmission Date: 20090719
  Serious: Yes (Other)
  Sender: FDA-Public Use
  Company Number: 279955

PATIENT
  Age: 69 Year
  Sex: Female

DRUGS (5)
  1. LEVEMIR [Suspect]
     Indication: DIABETES MELLITUS
     Dosage: QD, SUBCUTANEOUS
     Route: 058
  2. NOVOLOG MIX 70/30 [Suspect]
     Indication: DIABETES MELLITUS
     Dosage: SUBCUTANEOUS
     Route: 058
     Dates: start: 20080926, end: 20080927
  3. NOVOLOG [Suspect]
     Indication: BLOOD INSULIN
     Dosage: SUBCUTANEOUS
     Route: 058
     Dates: start: 20060101, end: 20080930
  4. NOVOLOG [Suspect]
     Indication: DIABETES MELLITUS
     Dosage: SUBCUTANEOUS
     Route: 058
     Dates: start: 20060101, end: 20080930
  5. LANTUS [Suspect]
     Indication: DIABETES MELLITUS
     Dosage: SUBCUTANEOUS
     Route: 058

REACTIONS (3)
  - GASTROOESOPHAGEAL REFLUX DISEASE [None]
  - HYPERSENSITIVITY [None]
  - MALAISE [None]
